FAERS Safety Report 5300986-7 (Version None)
Quarter: 2007Q1

REPORT INFORMATION
  Report Type: 
  Country: None (occurrence: None)
  Receive Date: 20070208
  Receipt Date: 20060426
  Transmission Date: 20070707
  Serious: Yes (Other)
  Sender: FDA-Public Use
  Company Number: PROG00206001421

PATIENT
  Age: 67 Year
  Sex: Female

DRUGS (5)
  1. PROMETRIUM [Suspect]
     Indication: MENOPAUSAL SYMPTOMS
     Dosage: DAILY ORAL DAILY DOSE
     Route: 048
  2. PREMARIN [Suspect]
     Indication: MENOPAUSAL SYMPTOMS
     Dosage: DAILY ORAL DAILY DOSE
     Route: 048
  3. PROVERA [Suspect]
     Indication: MENOPAUSAL SYMPTOMS
     Dosage: DAILY ORAL  DAILY DOSE
     Route: 048
  4. ESTRADIOL [Suspect]
     Indication: MENOPAUSAL SYMPTOMS
     Dosage: DAILY ORAL  DAILY DOSE
     Route: 048
  5. MEDROXYPROGESTERONE [Suspect]
     Indication: MENOPAUSAL SYMPTOMS
     Dosage: DAILY ORAL  DAILY DOSE
     Route: 048

REACTIONS (1)
  - BREAST CANCER IN SITU [None]
